FAERS Safety Report 7216244-X (Version None)
Quarter: 2011Q1

REPORT INFORMATION
  Report Type: 
  Country: None (occurrence: None)
  Receive Date: 20110107
  Receipt Date: 20101231
  Transmission Date: 20110831
  Serious: Yes (Death)
  Sender: FDA-Public Use
  Company Number: US-PFIZER INC-2011000386

PATIENT
  Sex: Male

DRUGS (7)
  1. BETA BLOCKING AGENTS [Suspect]
     Route: 048
  2. ALPRAZOLAM [Suspect]
     Route: 048
  3. LISINOPRIL [Suspect]
     Route: 048
  4. MELOXICAM [Suspect]
     Route: 048
  5. PROPOXYPHENE HCL AND ACETAMINOPHEN [Suspect]
     Route: 048
  6. AMITRIPTYLINE HCL [Suspect]
     Route: 048
  7. ASPIRIN [Suspect]
     Route: 048

REACTIONS (1)
  - COMPLETED SUICIDE [None]
